FAERS Safety Report 7998008-2 (Version None)
Quarter: 2011Q4

REPORT INFORMATION
  Report Type: 
  Country: None (occurrence: None)
  Receive Date: 20111221
  Receipt Date: 20101110
  Transmission Date: 20120403
  Serious: No
  Sender: FDA-Public Use
  Company Number: US-GLAXOSMITHKLINE-A0891832A

PATIENT
  Age: 82 Year
  Sex: Female

DRUGS (6)
  1. HIGH BLOOD PRESSURE PILL [Concomitant]
  2. LOVAZA [Suspect]
     Indication: BLOOD TRIGLYCERIDES INCREASED
     Dosage: 2CAP TWICE PER DAY
     Route: 048
     Dates: start: 20100601
  3. LIBRAX [Concomitant]
  4. IMODIUM [Concomitant]
  5. PERCOCET [Concomitant]
  6. CYMBALTA [Concomitant]

REACTIONS (4)
  - RASH [None]
  - PRURITUS [None]
  - IRRITABLE BOWEL SYNDROME [None]
  - ABDOMINAL DISCOMFORT [None]
